FAERS Safety Report 8126241-8 (Version None)
Quarter: 2012Q1

REPORT INFORMATION
  Report Type: 
  Country: None (occurrence: None)
  Receive Date: 20120209
  Receipt Date: 20120206
  Transmission Date: 20120608
  Serious: Yes (Hospitalization, Other)
  Sender: FDA-Public Use
  Company Number: PHBS2006JP14721

PATIENT
  Age: 74 Year
  Sex: Male

DRUGS (6)
  1. SIMULECT [Suspect]
     Indication: RENAL TRANSPLANT
     Dosage: 20 MG, UNK
     Route: 042
     Dates: start: 20051206
  2. BREDININ [Concomitant]
     Indication: RENAL TRANSPLANT
     Dosage: UNK UKN, UNK
  3. MEDROL [Concomitant]
     Indication: RENAL TRANSPLANT
     Dosage: 4 MG, UNK
     Route: 065
     Dates: start: 20051201
  4. MYCOPHENOLATE MOFETIL (CELLCEPT) [Concomitant]
     Indication: RENAL TRANSPLANT
     Dosage: UNK UKN, UNK
     Dates: start: 20051201, end: 20060101
  5. TACROLIMUS [Concomitant]
     Indication: RENAL TRANSPLANT
     Dosage: 2 MG, UNK
     Route: 065
     Dates: start: 20050201
  6. PROGRAF [Concomitant]
     Indication: RENAL TRANSPLANT
     Dosage: UNK UKN, UNK
     Dates: start: 20051201

REACTIONS (6)
  - URETERIC STENOSIS [None]
  - BLADDER STENOSIS [None]
  - CYTOMEGALOVIRUS INFECTION [None]
  - CHOLANGITIS [None]
  - URINARY TRACT INFECTION [None]
  - PNEUMONIA [None]
